FAERS Safety Report 11048900 (Version 2)
Quarter: 2015Q2

REPORT INFORMATION
  Report Type: Spontaneous
  Country: US (occurrence: US)
  Receive Date: 20150420
  Receipt Date: 20150519
  Transmission Date: 20150821
  Serious: Yes (Hospitalization, Other)
  Sender: FDA-Public Use
  Company Number: US-ASTELLAS-2014US021826

PATIENT
  Age: 72 Year
  Sex: Female
  Weight: 38 kg

DRUGS (1)
  1. TARCEVA [Suspect]
     Active Substance: ERLOTINIB HYDROCHLORIDE
     Indication: TRACHEAL CANCER
     Route: 048
     Dates: start: 20140618

REACTIONS (5)
  - Pneumonia [Recovered/Resolved]
  - Drug ineffective [Unknown]
  - Bronchitis [Recovered/Resolved]
  - Chronic obstructive pulmonary disease [Recovered/Resolved]
  - Malignant neoplasm progression [Unknown]

NARRATIVE: CASE EVENT DATE: 20150406
